FAERS Safety Report 9544215 (Version 1)
Quarter: 2013Q3

REPORT INFORMATION
  Report Type: Spontaneous
  Country: US (occurrence: US)
  Receive Date: 20130923
  Receipt Date: 20130923
  Transmission Date: 20140515
  Serious: No
  Sender: FDA-Public Use
  Company Number: US-ASTRAZENECA-2013SE68827

PATIENT
  Age: 69 Year
  Sex: Male
  Weight: 108.9 kg

DRUGS (7)
  1. ZESTRIL [Suspect]
     Indication: BLOOD PRESSURE
     Route: 048
     Dates: start: 2006
  2. TOPROL XL [Suspect]
     Indication: BLOOD PRESSURE
     Route: 048
     Dates: start: 2006
  3. LIPITOR [Concomitant]
     Indication: BLOOD CHOLESTEROL
     Dosage: 40 MG
     Dates: start: 2006
  4. COUMADIN [Concomitant]
     Indication: HEART RATE IRREGULAR
     Dosage: 5 MG
     Dates: start: 2006
  5. COUMADIN [Concomitant]
     Indication: THROMBOSIS
     Dosage: 5 MG
     Dates: start: 2006
  6. COUMADIN [Concomitant]
     Indication: HEART RATE IRREGULAR
     Dosage: 2.5 MG
     Dates: start: 2006
  7. COUMADIN [Concomitant]
     Indication: THROMBOSIS
     Dosage: 2.5 MG
     Dates: start: 2006

REACTIONS (7)
  - Bradycardia [Not Recovered/Not Resolved]
  - Upper-airway cough syndrome [Unknown]
  - Cough [Unknown]
  - Heart rate irregular [Not Recovered/Not Resolved]
  - Nasopharyngitis [Unknown]
  - Intentional drug misuse [Unknown]
  - Drug dose omission [Unknown]
